FAERS Safety Report 7481970-4 (Version None)
Quarter: 2011Q2

REPORT INFORMATION
  Report Type: 
  Country: None (occurrence: None)
  Receive Date: 20110516
  Receipt Date: 20110506
  Transmission Date: 20111010
  Serious: Yes (Life-Threatening, Hospitalization, Disabling, Other)
  Sender: FDA-Public Use
  Company Number: US-MERCK-1102USA02363

PATIENT
  Age: 48 Year
  Sex: Male
  Weight: 71 kg

DRUGS (9)
  1. IVEMEND [Suspect]
     Indication: PROPHYLAXIS OF NAUSEA AND VOMITING
     Route: 041
     Dates: start: 20110218, end: 20110218
  2. LOSARTAN POTASSIUM [Concomitant]
     Route: 048
  3. MANNITOL [Concomitant]
     Route: 042
  4. CISPLATIN [Concomitant]
     Indication: CHEMOTHERAPY
     Route: 041
  5. LORAZEPAM [Concomitant]
     Indication: NAUSEA
     Route: 048
  6. PROCHLORPERAZINE MALEATE [Concomitant]
     Indication: NAUSEA
     Route: 048
  7. FUROSEMIDE [Concomitant]
     Route: 041
  8. SODIUM CHLORIDE [Concomitant]
     Route: 041
  9. MAGNESIUM SULFATE [Concomitant]
     Route: 042

REACTIONS (16)
  - MUSCLE SPASMS [None]
  - HYPERHIDROSIS [None]
  - AGITATION [None]
  - HYPOXIA [None]
  - INFUSION SITE PAIN [None]
  - BRADYCARDIA [None]
  - MALAISE [None]
  - OXYGEN SATURATION DECREASED [None]
  - LOSS OF CONSCIOUSNESS [None]
  - SKIN DISCOLOURATION [None]
  - HYPOTENSION [None]
  - CARDIOTOXICITY [None]
  - SYNCOPE [None]
  - NAUSEA [None]
  - GRAND MAL CONVULSION [None]
  - INFUSION SITE REACTION [None]
